FAERS Safety Report 5519389-5 (Version None)
Quarter: 2007Q4

REPORT INFORMATION
  Report Type: 
  Country: None (occurrence: None)
  Receive Date: 20071114
  Receipt Date: 20071029
  Transmission Date: 20080405
  Serious: Yes (Other)
  Sender: FDA-Public Use
  Company Number: STI-2007-01896

PATIENT
  Sex: Female

DRUGS (2)
  1. BETAMETHASONE VALERATE [Suspect]
     Indication: BLEPHARITIS
     Route: 061
  2. CORTICOSTEROIDS (CORTICOSTEROIDS) [Suspect]
     Dosage: SYSTEMIC

REACTIONS (7)
  - BLEPHARITIS [None]
  - CONDITION AGGRAVATED [None]
  - DERMATITIS [None]
  - DRUG DEPENDENCE [None]
  - ERYTHEMA [None]
  - EYELID OEDEMA [None]
  - STEROID WITHDRAWAL SYNDROME [None]
